FAERS Safety Report 5649562-7 (Version None)
Quarter: 2008Q1

REPORT INFORMATION
  Report Type: 
  Country: None (occurrence: None)
  Receive Date: 20080304
  Receipt Date: 20080226
  Transmission Date: 20080703
  Serious: Yes (Death)
  Sender: FDA-Public Use
  Company Number: US-BAXTER-2008BH001236

PATIENT
  Age: 27 Year
  Sex: Female
  Weight: 149 kg

DRUGS (18)
  1. HEPARIN SODIUM [Suspect]
     Indication: THROMBOSIS PROPHYLAXIS
     Route: 058
     Dates: start: 20080121, end: 20080124
  2. PEPCID [Concomitant]
     Indication: DRUG USE FOR UNKNOWN INDICATION
     Route: 042
     Dates: start: 20080121, end: 20080124
  3. POLYTRIM [Concomitant]
     Indication: INFECTION
     Route: 047
     Dates: start: 20080121, end: 20080124
  4. HALDOL [Concomitant]
     Indication: AGITATION
     Route: 042
     Dates: start: 20080122, end: 20080122
  5. HALDOL [Concomitant]
     Route: 042
     Dates: start: 20080122, end: 20080122
  6. PRECEDEX [Concomitant]
     Indication: AGITATION
     Route: 042
     Dates: start: 20080122, end: 20080123
  7. SODIUM CHLORIDE [Concomitant]
     Indication: DRUG USE FOR UNKNOWN INDICATION
     Dosage: DOSE UNIT:CUBIC CENTIMETER
     Route: 065
     Dates: start: 20080120, end: 20080120
  8. INSULIN [Concomitant]
     Indication: DIABETES MELLITUS
     Route: 058
     Dates: start: 20080121, end: 20080124
  9. ACYCLOVIR [Concomitant]
     Indication: INFECTION
     Route: 042
     Dates: start: 20080121, end: 20080121
  10. DECADRON [Concomitant]
     Indication: DRUG USE FOR UNKNOWN INDICATION
     Route: 042
     Dates: start: 20080121, end: 20080123
  11. CEFTRIAXONE [Concomitant]
     Indication: INFECTION
     Dosage: DOSE UNIT:UNKNOWN
     Route: 042
     Dates: start: 20080121, end: 20080124
  12. VANCOMYCIN [Concomitant]
     Indication: INFECTION
     Dosage: DOSE UNIT:UNKNOWN
     Route: 042
     Dates: start: 20080121, end: 20080124
  13. AMPICILLIN [Concomitant]
     Indication: INFECTION
     Dosage: DOSE UNIT:UNKNOWN
     Route: 042
     Dates: start: 20080121, end: 20080121
  14. ATROPINE [Concomitant]
     Indication: CARDIO-RESPIRATORY ARREST
     Dosage: DOSE UNIT:UNKNOWN
     Route: 042
     Dates: start: 20080125, end: 20080125
  15. EPINEPHRINE [Concomitant]
     Indication: CARDIO-RESPIRATORY ARREST
     Dosage: DOSE UNIT:UNKNOWN
     Route: 041
     Dates: start: 20080125, end: 20080125
  16. NEOSTIGMINE [Concomitant]
     Indication: CARDIO-RESPIRATORY ARREST
     Dosage: DOSE UNIT:UNKNOWN
     Route: 042
     Dates: start: 20080125, end: 20080125
  17. LEVOTHYROXINE SODIUM [Concomitant]
     Indication: CARDIO-RESPIRATORY ARREST
     Dosage: DOSE UNIT:UNKNOWN
     Route: 041
     Dates: start: 20080125, end: 20080125
  18. HG HCO3 [Concomitant]
     Indication: CARDIO-RESPIRATORY ARREST
     Route: 042
     Dates: start: 20080125, end: 20080125

REACTIONS (4)
  - CARDIO-RESPIRATORY ARREST [None]
  - DIARRHOEA [None]
  - HEADACHE [None]
  - HYPOXIA [None]
